FAERS Safety Report 4668731-6 (Version None)
Quarter: 2005Q2

REPORT INFORMATION
  Report Type: 
  Country: None (occurrence: None)
  Receive Date: 20050523
  Receipt Date: 20040420
  Transmission Date: 20051028
  Serious: Yes (Hospitalization)
  Sender: FDA-Public Use
  Company Number: PHHO2004KR05718

PATIENT
  Age: 28 Year
  Sex: Female
  Weight: 57 kg

DRUGS (11)
  1. CALCIUM GLUCONATE [Concomitant]
  2. VITAMIN D [Concomitant]
  3. LAMIVUDINE [Concomitant]
     Indication: HEPATITIS B
     Dosage: 100 MG, QD
     Route: 048
     Dates: start: 20030704
  4. MAGNESIUM HYDROXIDE TAB [Concomitant]
     Indication: CONSTIPATION PROPHYLAXIS
     Dosage: 500 MG, TID
     Route: 048
     Dates: start: 20030704
  5. PHAZYME [Concomitant]
     Indication: DYSPEPSIA
     Dosage: 1 TABLET, TID
     Route: 048
     Dates: start: 20040315
  6. DOXORUBICIN HCL [Concomitant]
     Dates: start: 20030630, end: 20031208
  7. TAXOTERE [Concomitant]
     Dates: start: 20030630, end: 20031208
  8. CAPECITABINE [Concomitant]
     Dosage: 1500 MG, BID
     Route: 048
     Dates: start: 20040130
  9. CHLORHEXIDINE [Concomitant]
     Indication: STOMATITIS
     Dosage: .12 %, UNK
     Dates: start: 20030704
  10. PYRIDOXINE HCL [Concomitant]
     Dosage: 100 MG, QD
     Route: 048
     Dates: start: 20040130
  11. ZOLEDRONIC ACID [Suspect]
     Indication: METASTASES TO BONE
     Dosage: 4 MG, TIW/QMO
     Route: 042
     Dates: start: 20030725

REACTIONS (8)
  - CONDITION AGGRAVATED [None]
  - GINGIVITIS [None]
  - PAIN [None]
  - PURULENT DISCHARGE [None]
  - SEQUESTRECTOMY [None]
  - SWELLING [None]
  - TOOTH ABSCESS [None]
  - TOOTHACHE [None]
